FAERS Safety Report 18073398 (Version 1)
Quarter: 2020Q3

REPORT INFORMATION
  Report Type: Spontaneous
  Country: US (occurrence: US)
  Receive Date: 20200727
  Receipt Date: 20200727
  Transmission Date: 20201103
  Serious: Yes (Other)
  Sender: FDA-Public Use
  Company Number: None

PATIENT
  Age: 54 Year
  Sex: Female
  Weight: 54 kg

DRUGS (6)
  1. SIMASTATIN [Concomitant]
  2. IMODIUM [Suspect]
     Active Substance: LOPERAMIDE HYDROCHLORIDE
     Indication: DIARRHOEA
  3. PLAVIX [Concomitant]
     Active Substance: CLOPIDOGREL BISULFATE
  4. NASAL DE CONGESTION [Concomitant]
  5. AMLOPINE BESYLATE [Concomitant]
  6. BENYDRIL [Concomitant]

REACTIONS (3)
  - Quality of life decreased [None]
  - Insurance issue [None]
  - Product use issue [None]

NARRATIVE: CASE EVENT DATE: 20200601
